FAERS Safety Report 14609909 (Version 2)
Quarter: 2018Q1

REPORT INFORMATION
  Report Type: Spontaneous
  Country: HU (occurrence: HU)
  Receive Date: 20180307
  Receipt Date: 20180314
  Transmission Date: 20180509
  Serious: Yes (Life-Threatening, Hospitalization, Other)
  Sender: FDA-Public Use
  Company Number: HU-PFIZER INC-2018089116

PATIENT
  Age: 39 Year
  Sex: Female

DRUGS (13)
  1. AMOXICILLIN /00249602/ [Suspect]
     Active Substance: AMOXICILLIN
     Route: 065
  2. FLUDARABINE [Suspect]
     Active Substance: FLUDARABINE PHOSPHATE
     Dosage: 50 MG, UNK
     Route: 065
     Dates: start: 201401
  3. MILURIT [Concomitant]
     Active Substance: ALLOPURINOL
     Route: 065
  4. G-CSF [Concomitant]
     Active Substance: GRANULOCYTE COLONY-STIMULATING FACTOR NOS
     Indication: ACUTE MYELOID LEUKAEMIA
     Dosage: UNK
     Route: 065
     Dates: start: 201401
  5. ALEXAN /00146201/ [Suspect]
     Active Substance: CYTARABINE
     Dosage: 5.4 G, 2X/DAY
     Route: 042
     Dates: start: 201205
  6. ZAVEDOS [Concomitant]
     Active Substance: IDARUBICIN
     Indication: ACUTE MYELOID LEUKAEMIA
     Dosage: 14 MG, UNK
     Route: 042
     Dates: start: 201401
  7. ACICLOVIR [Concomitant]
     Active Substance: ACYCLOVIR
     Route: 065
  8. ALEXAN /00146201/ [Suspect]
     Active Substance: CYTARABINE
     Dosage: 190 MG, 1X/DAY (24 HR INFUSION)
     Route: 042
     Dates: start: 201203
  9. SUMETROLIM [Concomitant]
     Active Substance: SULFAMETHOXAZOLE\TRIMETHOPRIM
     Route: 065
  10. DAUNOBLASTIN [Concomitant]
     Active Substance: DAUNORUBICIN HYDROCHLORIDE
     Indication: ACUTE MYELOID LEUKAEMIA
     Dosage: 110 MG, UNK
     Route: 042
     Dates: start: 201203
  11. ALEXAN /00146201/ [Suspect]
     Active Substance: CYTARABINE
     Indication: ACUTE MYELOID LEUKAEMIA
     Dosage: 3.4 G, 2X/DAY
     Route: 042
     Dates: start: 201401
  12. DOXORUBICIN HCL [Suspect]
     Active Substance: DOXORUBICIN HYDROCHLORIDE
     Indication: ACUTE MYELOID LEUKAEMIA
     Dosage: 90 MG, UNK
     Route: 042
     Dates: start: 201204
  13. ALEXAN /00146201/ [Suspect]
     Active Substance: CYTARABINE
     Dosage: 5.5 G, 2X/DAY
     Route: 042
     Dates: start: 201204

REACTIONS (9)
  - Pyrexia [Recovered/Resolved]
  - Aspergillus infection [Unknown]
  - Respiratory failure [Unknown]
  - Pyrexia [Unknown]
  - Pyrexia [Recovered/Resolved]
  - Pyrexia [Recovered/Resolved]
  - Febrile neutropenia [Unknown]
  - Pyrexia [Recovered/Resolved]
  - Neoplasm recurrence [Unknown]

NARRATIVE: CASE EVENT DATE: 20120206
